FAERS Safety Report 20750530 (Version 1)
Quarter: 2022Q2

REPORT INFORMATION
  Report Type: Report from Study
  Country: AT (occurrence: AT)
  Receive Date: 20220426
  Receipt Date: 20220426
  Transmission Date: 20220721
  Serious: Yes (Death)
  Sender: FDA-Public Use
  Company Number: AT-MALLINCKRODT-T202202003

PATIENT

DRUGS (8)
  1. UVADEX [Suspect]
     Active Substance: METHOXSALEN
     Indication: Heart transplant rejection
     Dosage: UNK, EXTRACORPOREAL
     Route: 050
  2. TACROLIMUS [Concomitant]
     Active Substance: TACROLIMUS
     Indication: Immunosuppressant drug therapy
     Dosage: 8-10 NG/ML MONTHS 1-6; 5-8 NG/ML }6 MONTHS
     Route: 065
  3. MYCOPHENOLATE MOFETIL [Concomitant]
     Active Substance: MYCOPHENOLATE MOFETIL
     Indication: Immunosuppressant drug therapy
     Dosage: 1 GRAM, QD
     Route: 065
  4. MYCOPHENOLATE MOFETIL [Concomitant]
     Active Substance: MYCOPHENOLATE MOFETIL
     Dosage: 2 GRAM, QD
     Route: 065
  5. SULFAMETHOXAZOLE\TRIMETHOPRIM [Concomitant]
     Active Substance: SULFAMETHOXAZOLE\TRIMETHOPRIM
     Indication: Antifungal prophylaxis
     Dosage: 2 DF, QD 3X PER WEEK FOR 6 MONTHS
     Route: 048
  6. PREDNISOLONE [Concomitant]
     Active Substance: PREDNISOLONE
     Indication: Immunosuppressant drug therapy
     Dosage: 0.2 MILLIGRAM/KILOGRAM, QD, THEN TAPERED
     Route: 065
  7. METHYLPREDNISOLONE [Concomitant]
     Active Substance: METHYLPREDNISOLONE
     Indication: Immunosuppressant drug therapy
     Dosage: 500 MILLIGRAM
     Route: 065
  8. METHYLPREDNISOLONE [Concomitant]
     Active Substance: METHYLPREDNISOLONE
     Dosage: 125 MILLIGRAM, Q8H
     Route: 065

REACTIONS (3)
  - Recurrent cancer [Fatal]
  - Cardiac neoplasm malignant [Fatal]
  - Disease progression [Fatal]
